FAERS Safety Report 5631015-3 (Version None)
Quarter: 2008Q1

REPORT INFORMATION
  Report Type: 
  Country: None (occurrence: None)
  Receive Date: 20080131
  Receipt Date: 20071129
  Transmission Date: 20080703
  Serious: No
  Sender: FDA-Public Use
  Company Number: 163-21880-07110047

PATIENT
  Age: 66 Year
  Sex: Male
  Weight: 119.296 kg

DRUGS (3)
  1. REVLIMID [Suspect]
     Indication: MULTIPLE MYELOMA
     Dosage: 10 MG, DAILY FOR 21 DAYS, ORAL
     Route: 048
     Dates: start: 20060301
  2. INSULIN 70/30 (INSULIN) [Concomitant]
  3. REGULAR INSULIN [Concomitant]

REACTIONS (3)
  - CONDITION AGGRAVATED [None]
  - LOCALISED INFECTION [None]
  - NEUROPATHY PERIPHERAL [None]
